FAERS Safety Report 19821106 (Version 2)
Quarter: 2021Q3

REPORT INFORMATION
  Report Type: Spontaneous
  Country: US (occurrence: US)
  Receive Date: 20210913
  Receipt Date: 20210922
  Transmission Date: 20211014
  Serious: Yes (Other)
  Sender: FDA-Public Use
  Company Number: US-LUPIN PHARMACEUTICALS INC.-2021-16904

PATIENT
  Age: 61 Year
  Sex: Female

DRUGS (1)
  1. ALBUTEROL SULFATE INHALATION AEROSOL, 90 MCG/ACTUATION [Suspect]
     Active Substance: ALBUTEROL SULFATE
     Indication: PRODUCT USED FOR UNKNOWN INDICATION
     Dosage: UNK (2 PUFF Q 4 HRS)
     Dates: start: 202108

REACTIONS (5)
  - Oxygen saturation decreased [Unknown]
  - Headache [Unknown]
  - Wrong technique in product usage process [Unknown]
  - Cold sweat [Unknown]
  - Illness [Unknown]

NARRATIVE: CASE EVENT DATE: 202108
